FAERS Safety Report 23241627 (Version 2)
Quarter: 2023Q4

REPORT INFORMATION
  Report Type: Report from Study
  Country: US (occurrence: US)
  Receive Date: 20231129
  Receipt Date: 20231211
  Transmission Date: 20240109
  Serious: Yes (Hospitalization, Disabling, Other)
  Sender: FDA-Public Use
  Company Number: US-MYLANLABS-2023M1125886

PATIENT
  Age: 0 Year
  Sex: Female

DRUGS (3)
  1. SILDENAFIL [Suspect]
     Active Substance: SILDENAFIL
     Indication: Bronchopulmonary dysplasia
     Dosage: UNK (ENTERAL)
     Route: 065
     Dates: start: 20231109, end: 20231120
  2. HYDROCHLOROTHIAZIDE [Concomitant]
     Active Substance: HYDROCHLOROTHIAZIDE
     Indication: Diabetes insipidus
     Dosage: 2 DOSAGE FORM, QD
     Route: 048
     Dates: start: 20231104, end: 20231120
  3. FUROSEMIDE [Concomitant]
     Active Substance: FUROSEMIDE
     Dosage: UNK
     Route: 065
     Dates: start: 20231112, end: 20231120

REACTIONS (1)
  - Retinopathy of prematurity [Recovered/Resolved]

NARRATIVE: CASE EVENT DATE: 20231120
